FAERS Safety Report 11067766 (Version 1)
Quarter: 2015Q2

REPORT INFORMATION
  Report Type: Spontaneous
  Country: CA (occurrence: CA)
  Receive Date: 20150427
  Receipt Date: 20150427
  Transmission Date: 20150821
  Serious: Yes (Hospitalization, Other)
  Sender: FDA-Public Use
  Company Number: CA-AMGEN-CANSP2015039324

PATIENT
  Sex: Male

DRUGS (14)
  1. GABAPENTIN. [Concomitant]
     Active Substance: GABAPENTIN
  2. HYDROMORPHONE [Concomitant]
     Active Substance: HYDROMORPHONE
  3. LORAZEPAM. [Concomitant]
     Active Substance: LORAZEPAM
     Indication: SLEEP DISORDER
     Dosage: UNK UNK, AS NECESSARY
  4. PANTOPRAZOLE [Concomitant]
     Active Substance: PANTOPRAZOLE SODIUM
  5. PEG                                /01543001/ [Concomitant]
     Active Substance: PEGINTERFERON ALFA-2B
  6. GLYCERIN                           /00200601/ [Concomitant]
  7. XGEVA [Suspect]
     Active Substance: DENOSUMAB
     Indication: PROSTATE CANCER
     Dosage: UNK
     Route: 065
     Dates: start: 2013
  8. LACTULOSE. [Concomitant]
     Active Substance: LACTULOSE
  9. SENOKOT [Concomitant]
     Active Substance: SENNOSIDES
  10. CALCIUM [Concomitant]
     Active Substance: CALCIUM
  11. DALTEPARIN [Concomitant]
     Active Substance: DALTEPARIN
  12. ONDANSETRON [Concomitant]
     Active Substance: ONDANSETRON
     Dosage: UNK UNK, AS NECESSARY
  13. ZOLADEX [Concomitant]
     Active Substance: GOSERELIN ACETATE
  14. DEXAMETHASONE. [Concomitant]
     Active Substance: DEXAMETHASONE

REACTIONS (1)
  - Spinal operation [Unknown]
